FAERS Safety Report 12218943 (Version 1)
Quarter: 2016Q1

REPORT INFORMATION
  Report Type: Spontaneous
  Country: US (occurrence: US)
  Receive Date: 20160329
  Receipt Date: 20160329
  Transmission Date: 20160526
  Serious: Yes (Other)
  Sender: FDA-Public Use
  Company Number: US-BIOGEN-2016BI00211556

PATIENT

DRUGS (1)
  1. TYSABRI [Suspect]
     Active Substance: NATALIZUMAB
     Indication: MATERNAL EXPOSURE TIMING UNSPECIFIED
     Route: 064
     Dates: start: 20070109, end: 20110215

REACTIONS (4)
  - Pulmonary oedema neonatal [Unknown]
  - Infantile apnoea [Unknown]
  - Low birth weight baby [Unknown]
  - Foetal exposure timing unspecified [Unknown]
